FAERS Safety Report 5276813-3 (Version None)
Quarter: 2007Q1

REPORT INFORMATION
  Report Type: 
  Country: None (occurrence: None)
  Receive Date: 20070327
  Receipt Date: 20070322
  Transmission Date: 20070707
  Serious: Yes (Hospitalization)
  Sender: FDA-Public Use
  Company Number: FR-BRISTOL-MYERS SQUIBB COMPANY-13725601

PATIENT
  Age: 84 Year
  Sex: Male

DRUGS (6)
  1. COUMADIN [Suspect]
     Indication: EMBOLISM
     Route: 048
     Dates: end: 20070131
  2. COUMADIN [Interacting]
     Indication: THROMBOSIS
     Route: 048
     Dates: end: 20070131
  3. KARDEGIC [Interacting]
     Indication: EMBOLISM
     Route: 048
  4. KARDEGIC [Interacting]
     Indication: THROMBOSIS
     Route: 048
  5. SEROPRAM [Interacting]
     Route: 048
  6. NEURONTIN [Concomitant]
     Indication: EPILEPSY
     Route: 048

REACTIONS (2)
  - DRUG INTERACTION [None]
  - EPISTAXIS [None]
